FAERS Safety Report 9444369 (Version 1)
Quarter: 2013Q3

REPORT INFORMATION
  Report Type: Spontaneous
  Country: US (occurrence: None)
  Receive Date: 20130806
  Receipt Date: 20130806
  Transmission Date: 20140515
  Serious: No
  Sender: FDA-Public Use
  Company Number: None

PATIENT
  Age: 84 Year
  Sex: Male
  Weight: 87.5 kg

DRUGS (1)
  1. LATANOPROST [Suspect]
     Indication: GLAUCOMA
     Dosage: 1 DROPS AT BEDTIME EYE ?~07/09/2013 THRU 01/22/2013
     Dates: end: 20130122

REACTIONS (1)
  - No therapeutic response [None]
